FAERS Safety Report 5225471-2 (Version None)
Quarter: 2007Q1

REPORT INFORMATION
  Report Type: 
  Country: None (occurrence: None)
  Receive Date: 20061201
  Receipt Date: 20060823
  Transmission Date: 20070707
  Serious: No
  Sender: FDA-Public Use
  Company Number: US200608005014

PATIENT
  Age: 44 Year
  Sex: Female

DRUGS (2)
  1. CYMBALTA [Suspect]
     Indication: DEPRESSION
     Dosage: 60 MG
  2. AMITRIPTYLINE HCL [Concomitant]

REACTIONS (4)
  - DRUG EFFECT DECREASED [None]
  - FIBROMYALGIA [None]
  - INSOMNIA [None]
  - PREMENSTRUAL SYNDROME [None]
